FAERS Safety Report 12601932 (Version 1)
Quarter: 2016Q3

REPORT INFORMATION
  Report Type: Spontaneous
  Country: FI (occurrence: FI)
  Receive Date: 20160728
  Receipt Date: 20160728
  Transmission Date: 20161109
  Serious: Yes (Disabling)
  Sender: FDA-Public Use
  Company Number: FI-TEVA-678236ISR

PATIENT
  Sex: Female

DRUGS (13)
  1. SIMVASTATIN RATIOPHARM 40MG [Suspect]
     Active Substance: SIMVASTATIN
     Indication: HYPERCHOLESTEROLAEMIA
     Dosage: 40 MILLIGRAM DAILY;
     Route: 048
     Dates: start: 20060915, end: 20160425
  2. CALCICHEW D3 FORTE [Concomitant]
     Active Substance: CALCIUM\CHOLECALCIFEROL
     Dosage: 2 DOSAGE FORMS DAILY; 1 DOSAGE FORM = 500MG CACLIUM + 400IU VITAMIN D
     Route: 048
     Dates: start: 20090121
  3. MAREVAN FORTE [Concomitant]
     Active Substance: WARFARIN SODIUM
     Route: 048
     Dates: start: 20061124
  4. TENOX 20MG [Concomitant]
     Dosage: 0.5-1 TABLET DAILY, AS NEEDED
     Route: 048
     Dates: start: 20070911
  5. PSYLLIUM [Concomitant]
     Active Substance: PLANTAGO SEED
     Dosage: 2 DOSAGE FORMS DAILY;
     Route: 048
     Dates: start: 20080723
  6. COHEMIN DEPOT 1 MG/ML [Concomitant]
     Route: 030
     Dates: start: 20121130
  7. CARDACE 2.5 MG [Concomitant]
     Active Substance: RAMIPRIL
     Dosage: 1.25 MILLIGRAM DAILY;
     Route: 048
     Dates: start: 20110408
  8. SYMBICORT [Concomitant]
     Active Substance: BUDESONIDE\FORMOTEROL FUMARATE DIHYDRATE
     Dosage: 2 INHALATIONS, 2-4 TIMES A DAY
     Route: 055
     Dates: start: 20070316
  9. NORVASC [Concomitant]
     Active Substance: AMLODIPINE BESYLATE
     Dosage: 5 MILLIGRAM DAILY;
     Route: 048
     Dates: start: 20101019
  10. PANADOL FORTE 1G [Concomitant]
     Dosage: 3000 MILLIGRAM DAILY;
     Route: 048
     Dates: start: 20070531
  11. ORLOC 5MG [Concomitant]
     Dosage: 5 MILLIGRAM DAILY;
     Route: 048
     Dates: start: 20090921
  12. BUVENTOL EASYHALER 200MCG/DOS [Concomitant]
     Dosage: 1 INHALATION, 1-4 TIMES WHEN NEEDED
     Route: 055
     Dates: start: 20080609
  13. FLAVAMED [Concomitant]
     Active Substance: AMBROXOL
     Dosage: 1 TABLET 1-3 TIMES A DAY
     Route: 048
     Dates: start: 20130425

REACTIONS (7)
  - Pancreatic insufficiency [Unknown]
  - Intestinal villi atrophy [Unknown]
  - Abdominal discomfort [None]
  - Weight decreased [Unknown]
  - Diarrhoea [Unknown]
  - Asthenia [Recovered/Resolved]
  - Coeliac disease [None]
